FAERS Safety Report 5756607-2 (Version None)
Quarter: 2008Q2

REPORT INFORMATION
  Report Type: 
  Country: None (occurrence: None)
  Receive Date: 20080603
  Receipt Date: 20080501
  Transmission Date: 20081010
  Serious: Yes (Other)
  Sender: FDA-Public Use
  Company Number: US-NOVOPROD-271753

PATIENT
  Age: 19 Year
  Sex: Female

DRUGS (2)
  1. NOVOLOG MIX 70/30 [Suspect]
     Indication: TYPE 1 DIABETES MELLITUS
     Dosage: 26LU - AM 18LU - PM
     Route: 058
     Dates: start: 20070301
  2. HUMALOG MIX 25 [Suspect]
     Indication: TYPE 1 DIABETES MELLITUS
     Dosage: 24LU - AM  17-LU PM
     Route: 058
     Dates: start: 20061201, end: 20070301

REACTIONS (1)
  - DIABETIC RETINOPATHY [None]
